FAERS Safety Report 22058392 (Version 1)
Quarter: 2023Q1

REPORT INFORMATION
  Report Type: Spontaneous
  Country: DE (occurrence: DE)
  Receive Date: 20230303
  Receipt Date: 20230303
  Transmission Date: 20230418
  Serious: Yes (Hospitalization, Other)
  Sender: FDA-Public Use
  Company Number: DE-ABBVIE-4312172

PATIENT
  Age: 46 Year
  Sex: Female

DRUGS (2)
  1. AMOXICILLIN [Suspect]
     Active Substance: AMOXICILLIN
     Indication: Product used for unknown indication
     Dosage: UNK
     Route: 048
  2. RINVOQ [Suspect]
     Active Substance: UPADACITINIB
     Indication: Axial spondyloarthritis
     Dosage: 15 MILLIGRAM, ONCE A DAY
     Route: 048
     Dates: start: 202206

REACTIONS (2)
  - Pneumonia [Unknown]
  - Anaphylactic reaction [Unknown]

NARRATIVE: CASE EVENT DATE: 20230203
